FAERS Safety Report 8209419-4 (Version None)
Quarter: 2012Q1

REPORT INFORMATION
  Report Type: 
  Country: None (occurrence: None)
  Receive Date: 20120314
  Receipt Date: 20120313
  Transmission Date: 20120608
  Serious: Yes (Other)
  Sender: FDA-Public Use
  Company Number: BE-PFIZER INC-2012043077

PATIENT

DRUGS (2)
  1. LYRICA [Suspect]
     Indication: DIABETES MELLITUS
     Dosage: UNK
     Route: 048
  2. LYRICA [Suspect]
     Indication: PHANTOM PAIN

REACTIONS (1)
  - EPILEPSY [None]
